FAERS Safety Report 7152610-9 (Version None)
Quarter: 2010Q4

REPORT INFORMATION
  Report Type: 
  Country: None (occurrence: None)
  Receive Date: 20101213
  Receipt Date: 20101206
  Transmission Date: 20110411
  Serious: Yes (Hospitalization, Other)
  Sender: FDA-Public Use
  Company Number: DE-JNJFOC-20090406716

PATIENT
  Sex: Male
  Weight: 116 kg

DRUGS (5)
  1. RISPERDAL CONSTA [Suspect]
     Indication: ILL-DEFINED DISORDER
     Route: 030
  2. RISPERDAL [Suspect]
     Indication: ILL-DEFINED DISORDER
     Dosage: FROM SEVERAL YEARS
     Route: 048
  3. ABILIFY [Concomitant]
     Route: 048
  4. LEVOMEPROMAZINE MALEATE [Concomitant]
     Route: 048
  5. ELONTRIL [Concomitant]
     Route: 048

REACTIONS (1)
  - DEEP VEIN THROMBOSIS [None]
